FAERS Safety Report 6805170-3 (Version None)
Quarter: 2010Q2

REPORT INFORMATION
  Report Type: 
  Country: None (occurrence: None)
  Receive Date: 20100628
  Receipt Date: 20071018
  Transmission Date: 20101027
  Serious: No
  Sender: FDA-Public Use
  Company Number: US-PFIZER INC-2007061187

PATIENT
  Sex: Female
  Weight: 59 kg

DRUGS (5)
  1. SUTENT [Suspect]
     Indication: LUNG NEOPLASM MALIGNANT
     Dates: start: 20070620, end: 20070716
  2. KEPPRA [Concomitant]
  3. LEXAPRO [Concomitant]
  4. DECADRON [Concomitant]
  5. CYMBALTA [Concomitant]

REACTIONS (5)
  - CHEST PAIN [None]
  - HYPOPHAGIA [None]
  - OESOPHAGEAL PAIN [None]
  - STOMATITIS [None]
  - SWELLING [None]
